FAERS Safety Report 7673652-0 (Version None)
Quarter: 2011Q3

REPORT INFORMATION
  Report Type: 
  Country: None (occurrence: None)
  Receive Date: 20110810
  Receipt Date: 20110125
  Transmission Date: 20111222
  Serious: No
  Sender: FDA-Public Use
  Company Number: US-BAYER-2011-009086

PATIENT
  Age: 83 Year
  Sex: Female

DRUGS (4)
  1. AMLODIPINE [Concomitant]
  2. METOPROLOL TARTRATE [Concomitant]
  3. CIPROFLOXACIN HCL [Suspect]
     Indication: URINARY TRACT INFECTION
     Dosage: 250 MG, BID
     Route: 048
     Dates: start: 20110120
  4. CRESTOR [Concomitant]

REACTIONS (8)
  - FLATULENCE [None]
  - PARAESTHESIA [None]
  - DIARRHOEA [None]
  - INSOMNIA [None]
  - HEADACHE [None]
  - PAIN IN EXTREMITY [None]
  - THINKING ABNORMAL [None]
  - MALAISE [None]
